FAERS Safety Report 19918774 (Version 1)
Quarter: 2021Q4

REPORT INFORMATION
  Report Type: Spontaneous
  Country: US (occurrence: US)
  Receive Date: 20211005
  Receipt Date: 20211005
  Transmission Date: 20220303
  Serious: No
  Sender: FDA-Public Use
  Company Number: US-TEVA-2021-US-1960544

PATIENT
  Age: 66 Year
  Sex: Female

DRUGS (1)
  1. ALPRAZOLAM [Suspect]
     Active Substance: ALPRAZOLAM
     Indication: Anxiety
     Dosage: 4 MILLIGRAM DAILY; 8 TABLETS DAILY/ TAKING SINCE 20 YEARS
     Route: 065

REACTIONS (5)
  - Drug ineffective [Unknown]
  - Nervousness [Unknown]
  - Feeling jittery [Unknown]
  - Feeling abnormal [Unknown]
  - Insomnia [Unknown]

NARRATIVE: CASE EVENT DATE: 20210901
